FAERS Safety Report 7017407-9 (Version None)
Quarter: 2010Q3

REPORT INFORMATION
  Report Type: 
  Country: None (occurrence: None)
  Receive Date: 20100909
  Receipt Date: 20100707
  Transmission Date: 20110219
  Serious: No
  Sender: FDA-Public Use
  Company Number: 2010SP037794

PATIENT
  Age: 38 Year
  Sex: Female

DRUGS (2)
  1. SAPHRIS [Suspect]
     Indication: BIPOLAR DISORDER
     Dosage: 10 MG; BID; SL
     Route: 060
     Dates: start: 20100607, end: 20100618
  2. LITHIUM [Concomitant]

REACTIONS (6)
  - BURNING SENSATION [None]
  - DYSGEUSIA [None]
  - ERYTHEMA [None]
  - SKIN BURNING SENSATION [None]
  - SKIN DISCOLOURATION [None]
  - SKIN DISORDER [None]
